FAERS Safety Report 14101617 (Version 3)
Quarter: 2021Q4

REPORT INFORMATION
  Report Type: Report from Study
  Country: FR (occurrence: FR)
  Receive Date: 20171018
  Receipt Date: 20211209
  Transmission Date: 20220303
  Serious: Yes (Disabling)
  Sender: FDA-Public Use
  Company Number: FR-SHIRE-FR201725024

PATIENT
  Age: 51 Year
  Sex: Male
  Weight: 64.399 kg

DRUGS (12)
  1. TEDUGLUTIDE [Suspect]
     Active Substance: TEDUGLUTIDE
     Indication: Short-bowel syndrome
     Dosage: 3.2 MILLIGRAM/KILOGRAM
     Route: 065
     Dates: start: 20161223, end: 20170221
  2. TEDUGLUTIDE [Suspect]
     Active Substance: TEDUGLUTIDE
     Indication: Short-bowel syndrome
     Dosage: 3.2 MILLIGRAM/KILOGRAM
     Route: 065
     Dates: start: 20161223, end: 20170221
  3. TEDUGLUTIDE [Suspect]
     Active Substance: TEDUGLUTIDE
     Indication: Short-bowel syndrome
     Dosage: 3.2 MILLIGRAM/KILOGRAM
     Route: 065
     Dates: start: 20161223, end: 20170221
  4. TEDUGLUTIDE [Suspect]
     Active Substance: TEDUGLUTIDE
     Indication: Short-bowel syndrome
     Dosage: 3.2 MILLIGRAM/KILOGRAM
     Route: 065
     Dates: start: 20161223, end: 20170221
  5. TEDUGLUTIDE [Suspect]
     Active Substance: TEDUGLUTIDE
     Dosage: 3.4 MILLIGRAM/KILOGRAM
     Route: 065
     Dates: start: 20170222, end: 20170830
  6. TEDUGLUTIDE [Suspect]
     Active Substance: TEDUGLUTIDE
     Dosage: 3.4 MILLIGRAM/KILOGRAM
     Route: 065
     Dates: start: 20170222, end: 20170830
  7. TEDUGLUTIDE [Suspect]
     Active Substance: TEDUGLUTIDE
     Dosage: 3.4 MILLIGRAM/KILOGRAM
     Route: 065
     Dates: start: 20170222, end: 20170830
  8. TEDUGLUTIDE [Suspect]
     Active Substance: TEDUGLUTIDE
     Dosage: 3.4 MILLIGRAM/KILOGRAM
     Route: 065
     Dates: start: 20170222, end: 20170830
  9. GENTAMICIN SULFATE [Concomitant]
     Active Substance: GENTAMICIN SULFATE
     Indication: Irritable bowel syndrome
     Route: 065
  10. LOPERAMIDE HYDROCHLORIDE [Concomitant]
     Active Substance: LOPERAMIDE HYDROCHLORIDE
     Indication: Diarrhoea
     Route: 065
  11. CICLOPIROX [Concomitant]
     Active Substance: CICLOPIROX
     Indication: Fungal infection
     Route: 065
  12. ECONAZOLE NITRATE [Concomitant]
     Active Substance: ECONAZOLE NITRATE
     Indication: Fungal infection
     Route: 065

REACTIONS (2)
  - Asthenia [Not Recovered/Not Resolved]
  - Gastrointestinal sounds abnormal [Recovered/Resolved]

NARRATIVE: CASE EVENT DATE: 20170101
